FAERS Safety Report 7880222-8 (Version None)
Quarter: 2011Q4

REPORT INFORMATION
  Report Type: 
  Country: None (occurrence: None)
  Receive Date: 20111101
  Receipt Date: 20111025
  Transmission Date: 20120403
  Serious: Yes (Hospitalization, Other)
  Sender: FDA-Public Use
  Company Number: BR-ABBOTT-10P-020-0669017-00

PATIENT
  Sex: Female
  Weight: 50 kg

DRUGS (4)
  1. HUMIRA [Suspect]
  2. HUMIRA [Suspect]
     Indication: RHEUMATOID ARTHRITIS
     Route: 058
     Dates: end: 20100701
  3. LOSARTAN POTASSIUM [Concomitant]
     Indication: HYPERTENSION
     Dosage: 2 IN 1 D, 100 MG DAILY DOSE
     Route: 048
  4. ENALAPRIL MALEATE [Concomitant]
     Indication: BLOOD PRESSURE
     Route: 048

REACTIONS (5)
  - CORONARY ARTERY BYPASS [None]
  - NASOPHARYNGITIS [None]
  - DYSPHONIA [None]
  - OROPHARYNGEAL PAIN [None]
  - CORONARY ARTERY OCCLUSION [None]
